FAERS Safety Report 6193125-4 (Version None)
Quarter: 2009Q2

REPORT INFORMATION
  Report Type: 
  Country: None (occurrence: None)
  Receive Date: 20090518
  Receipt Date: 20090511
  Transmission Date: 20091009
  Serious: Yes (Death)
  Sender: FDA-Public Use
  Company Number: US-AVENTIS-200914103US

PATIENT
  Sex: Male

DRUGS (1)
  1. ALLEGRA [Suspect]
     Dosage: DOSE: UNK

REACTIONS (1)
  - DEATH [None]
